FAERS Safety Report 4319721-4 (Version None)
Quarter: 2004Q1

REPORT INFORMATION
  Report Type: 
  Country: None (occurrence: None)
  Receive Date: 20040316
  Receipt Date: 20040302
  Transmission Date: 20041129
  Serious: Yes (Hospitalization, Disabling, Other)
  Sender: FDA-Public Use
  Company Number: US-JNJFOC-20030903694

PATIENT
  Age: 30 Year
  Sex: Female
  Weight: 69.4003 kg

DRUGS (6)
  1. REMICADE [Suspect]
     Indication: CROHN'S DISEASE
     Dosage: INTRAVENOUS
     Route: 042
     Dates: start: 20020829
  2. PENTASA [Concomitant]
  3. CELEXA [Concomitant]
  4. HYDROCHLOROTHIAZIDE [Concomitant]
  5. PROTONIX [Concomitant]
  6. PURENTHAL (ALL OTHER THERAPEUTIC PRODUCTS) [Concomitant]

REACTIONS (41)
  - ACTIVITIES OF DAILY LIVING IMPAIRED [None]
  - ACUTE SINUSITIS [None]
  - ANHEDONIA [None]
  - ANTINUCLEAR ANTIBODY POSITIVE [None]
  - ANXIETY [None]
  - BRONCHITIS [None]
  - CAECITIS [None]
  - CELLULITIS [None]
  - CROHN'S DISEASE [None]
  - CRYING [None]
  - DEPRESSION [None]
  - DNA ANTIBODY POSITIVE [None]
  - DRUG INTOLERANCE [None]
  - DUODENAL ULCER [None]
  - ECCHYMOSIS [None]
  - EXOSTOSIS [None]
  - FALL [None]
  - FATIGUE [None]
  - FOLLICULITIS [None]
  - GASTRIC OUTLET OBSTRUCTION [None]
  - GASTRITIS EROSIVE [None]
  - HEADACHE [None]
  - HELICOBACTER INFECTION [None]
  - HYPOAESTHESIA [None]
  - IRON DEFICIENCY ANAEMIA [None]
  - JOINT SPRAIN [None]
  - LABYRINTHITIS [None]
  - LOCALISED OSTEOARTHRITIS [None]
  - MEDICATION ERROR [None]
  - MOOD ALTERED [None]
  - MUSCULOSKELETAL STIFFNESS [None]
  - NEUROPATHY [None]
  - ODYNOPHAGIA [None]
  - OTITIS MEDIA [None]
  - PAIN IN EXTREMITY [None]
  - PANIC ATTACK [None]
  - PHARYNGITIS [None]
  - POLYTRAUMATISM [None]
  - SINUS DISORDER [None]
  - SLE ARTHRITIS [None]
  - WOUND INFECTION STAPHYLOCOCCAL [None]
